FAERS Safety Report 9864147 (Version 1)
Quarter: 2014Q1

REPORT INFORMATION
  Report Type: Spontaneous
  Country: FR (occurrence: FR)
  Receive Date: 20140203
  Receipt Date: 20140203
  Transmission Date: 20141002
  Serious: Yes (Hospitalization)
  Sender: FDA-Public Use
  Company Number: FR-PFIZER INC-2014029071

PATIENT
  Age: 83 Year
  Sex: Female

DRUGS (20)
  1. LYRICA [Suspect]
     Indication: SCIATICA
     Dosage: 25 MG, 3X/DAY
     Route: 048
     Dates: start: 20131122, end: 20131220
  2. FURADANTINE [Suspect]
     Indication: CYSTITIS-LIKE SYMPTOM
     Dosage: 50 MG, 2 EVERY 8 HOURS
     Route: 048
     Dates: start: 20131127, end: 20131129
  3. TIENAM [Suspect]
     Indication: PYELONEPHRITIS
     Dosage: 500 MG, 4X/DAY
     Route: 042
     Dates: start: 20131129, end: 20131209
  4. PREVISCAN [Concomitant]
     Dosage: 20 MG, UNK
  5. DEROXAT [Concomitant]
     Dosage: 20 MG, UNK
  6. TOPALGIC [Concomitant]
  7. FORLAX [Concomitant]
     Dosage: 10 G, UNK
  8. KARDEGIC [Concomitant]
     Dosage: 75 MG, UNK
  9. IMOVANE [Concomitant]
     Dosage: 7.5 MG, UNK
  10. DAFALGAN [Concomitant]
     Dosage: 500 MG, UNK
  11. CERIS [Concomitant]
     Dosage: 20 MG, UNK
  12. LASILIX [Concomitant]
     Dosage: 40 MG, UNK
  13. TARDYFERON [Concomitant]
     Dosage: 80 MG, UNK
  14. SPECIAFOLDINE [Concomitant]
     Dosage: 5 MG, UNK
  15. DIFFU K [Concomitant]
  16. ACUPAN [Concomitant]
  17. TOPALGIC LP [Concomitant]
     Dosage: 100 MG, UNK
  18. DIPROSONE 0.05 PER CENT [Concomitant]
  19. FUNGIZONE 10 PER CENT [Concomitant]
  20. SMECTA [Concomitant]

REACTIONS (1)
  - Pancytopenia [Not Recovered/Not Resolved]
